FAERS Safety Report 9413537 (Version 1)
Quarter: 2013Q2

REPORT INFORMATION
  Report Type: Spontaneous
  Country: TR (occurrence: None)
  Receive Date: 20130610
  Receipt Date: 20130610
  Transmission Date: 20140414
  Serious: Yes (Other)
  Sender: FDA-Public Use
  Company Number: 221747

PATIENT
  Age: 30 Year
  Sex: Female

DRUGS (3)
  1. TINZAPARIN [Suspect]
     Indication: THROMBOSIS PROPHYLAXIS
  2. ILOPROST (ILOPROST) [Concomitant]
  3. SILDENAFIL (FILDENAFIL) [Concomitant]

REACTIONS (5)
  - Maternal exposure during pregnancy [None]
  - Off label use [None]
  - Cardiac failure [None]
  - Oxygen saturation decreased [None]
  - Caesarean section [None]
